FAERS Safety Report 9617493 (Version 2)
Quarter: 2013Q4

REPORT INFORMATION
  Report Type: Spontaneous
  Country: US (occurrence: US)
  Receive Date: 20131011
  Receipt Date: 20131212
  Transmission Date: 20140711
  Serious: Yes (Hospitalization)
  Sender: FDA-Public Use
  Company Number: US-GLAXOSMITHKLINE-A1044593A

PATIENT
  Age: 67 Year
  Sex: Female

DRUGS (13)
  1. ADVAIR [Suspect]
     Indication: ASPERGILLUS INFECTION
     Dosage: 1PUFF TWICE PER DAY
     Route: 055
     Dates: start: 2006
  2. BETA BLOCKER [Suspect]
     Indication: BLOOD PRESSURE
     Route: 065
  3. NIFEDIPINE [Suspect]
     Indication: BLOOD PRESSURE
     Route: 065
  4. SPIRIVA [Concomitant]
  5. OXYGEN [Concomitant]
  6. SPORANOX [Concomitant]
  7. PREDNISONE [Concomitant]
  8. ANTIBIOTIC [Concomitant]
  9. UNKNOWN [Concomitant]
  10. LISINOPRIL [Concomitant]
  11. DILTIAZEM [Concomitant]
  12. AZITHROMYCIN [Concomitant]
  13. CLOTRIMAZOLE LOZENGES [Concomitant]

REACTIONS (14)
  - Oesophageal candidiasis [Recovering/Resolving]
  - Bronchostenosis [Recovering/Resolving]
  - Oral candidiasis [Recovering/Resolving]
  - Oral disorder [Recovering/Resolving]
  - Dysphonia [Recovering/Resolving]
  - Hypertension [Recovered/Resolved]
  - Dyspnoea [Recovering/Resolving]
  - Bedridden [Recovering/Resolving]
  - Pulmonary function test decreased [Recovering/Resolving]
  - Food craving [Recovering/Resolving]
  - Blood glucose increased [Recovering/Resolving]
  - Blood sodium decreased [Recovering/Resolving]
  - Blood potassium decreased [Recovering/Resolving]
  - Drug administration error [Recovered/Resolved]
